FAERS Safety Report 9652009 (Version 3)
Quarter: 2013Q4

REPORT INFORMATION
  Report Type: Spontaneous
  Country: US (occurrence: US)
  Receive Date: 20131029
  Receipt Date: 20131126
  Transmission Date: 20140711
  Serious: No
  Sender: FDA-Public Use
  Company Number: US-009507513-1310USA013319

PATIENT
  Age: 55 Year
  Sex: Male

DRUGS (2)
  1. CLARITIN [Suspect]
     Indication: RHINORRHOEA
     Dosage: 10 MG, QD
     Route: 048
     Dates: start: 20131014, end: 20131019
  2. CLARITIN [Suspect]
     Indication: LACRIMATION INCREASED

REACTIONS (1)
  - Drug ineffective [Unknown]
